FAERS Safety Report 5313874-7 (Version None)
Quarter: 2007Q2

REPORT INFORMATION
  Report Type: 
  Country: None (occurrence: None)
  Receive Date: 20070501
  Receipt Date: 20070426
  Transmission Date: 20071010
  Serious: Yes (Other)
  Sender: FDA-Public Use
  Company Number: 2007UW08165

PATIENT
  Age: 34 Year
  Sex: Female
  Weight: 74 kg

DRUGS (6)
  1. ZOLADEX [Suspect]
     Indication: ENDOMETRIOSIS
     Route: 058
     Dates: start: 20070409
  2. NIMESULIDE [Concomitant]
     Indication: INFLAMMATION
     Route: 048
     Dates: start: 20070423
  3. MIOSAN [Concomitant]
     Indication: MUSCLE RELAXANT THERAPY
     Route: 048
     Dates: start: 20070421
  4. VOLTAREN [Concomitant]
     Indication: PAIN
     Route: 048
     Dates: start: 20070419
  5. PONSTAN [Concomitant]
     Route: 048
     Dates: start: 20070423
  6. KETOPROFEN [Concomitant]
     Route: 048
     Dates: start: 20070419

REACTIONS (7)
  - ABDOMINAL PAIN UPPER [None]
  - FALL [None]
  - HOT FLUSH [None]
  - INSOMNIA [None]
  - MENSTRUAL DISORDER [None]
  - SCIATIC NERVE INJURY [None]
  - SWELLING [None]
